FAERS Safety Report 15422733 (Version 1)
Quarter: 2018Q3

REPORT INFORMATION
  Report Type: Spontaneous
  Country: ES (occurrence: ES)
  Receive Date: 20180925
  Receipt Date: 20180925
  Transmission Date: 20181010
  Serious: Yes (Hospitalization)
  Sender: FDA-Public Use
  Company Number: ES-CHEPLA-C20181262

PATIENT
  Age: 42 Year
  Sex: Male
  Weight: 131 kg

DRUGS (1)
  1. ORLISTAT. [Suspect]
     Active Substance: ORLISTAT
     Indication: HEPATIC STEATOSIS
     Dosage: 240 MG, QD?TREATMENT WITH HYPOCALORIC DIET

REACTIONS (6)
  - Encephalopathy [Recovered/Resolved]
  - Acute hepatic failure [Recovered/Resolved]
  - Coagulopathy [Recovered/Resolved]
  - Oliguria [Recovered/Resolved]
  - Condition aggravated [Recovered/Resolved]
  - Hypovolaemic shock [Recovered/Resolved]
